FAERS Safety Report 5230199-9 (Version None)
Quarter: 2007Q1

REPORT INFORMATION
  Report Type: 
  Country: None (occurrence: None)
  Receive Date: 20070206
  Receipt Date: 20060928
  Transmission Date: 20070707
  Serious: No
  Sender: FDA-Public Use
  Company Number: US-GLAXOSMITHKLINE-A0621811A

PATIENT
  Age: 52 Year
  Sex: Female

DRUGS (3)
  1. PAXIL CR [Suspect]
     Dosage: 37.5MG PER DAY
     Route: 048
  2. LIPITOR [Concomitant]
  3. LEVOTHROID [Concomitant]

REACTIONS (1)
  - BALANCE DISORDER [None]
